FAERS Safety Report 7806914-4 (Version None)
Quarter: 2011Q4

REPORT INFORMATION
  Report Type: 
  Country: None (occurrence: None)
  Receive Date: 20111011
  Receipt Date: 20111003
  Transmission Date: 20120403
  Serious: Yes (Hospitalization)
  Sender: FDA-Public Use
  Company Number: PHHY2011IT87909

PATIENT
  Sex: Male

DRUGS (2)
  1. RAMIPRIL [Suspect]
     Dosage: UNK UKN, UNK
  2. FUROSEMIDE [Suspect]
     Dosage: UNK UKN, UNK

REACTIONS (1)
  - RENAL FAILURE ACUTE [None]
